FAERS Safety Report 6776691-7 (Version None)
Quarter: 2010Q2

REPORT INFORMATION
  Report Type: 
  Country: None (occurrence: None)
  Receive Date: 20100617
  Receipt Date: 20100617
  Transmission Date: 20101027
  Serious: Yes (Hospitalization)
  Sender: FDA-Public Use
  Company Number: None

PATIENT
  Sex: Female
  Weight: 60.4 kg

DRUGS (2)
  1. CYCLOPHOSPHAMIDE [Suspect]
     Dosage: 1030 MG
  2. DOXORUBICIN HCL [Suspect]
     Dosage: 105 MG

REACTIONS (3)
  - DEHYDRATION [None]
  - HYPOTENSION [None]
  - SEPSIS [None]
